FAERS Safety Report 5211694-5 (Version None)
Quarter: 2007Q1

REPORT INFORMATION
  Report Type: 
  Country: None (occurrence: None)
  Receive Date: 20070118
  Receipt Date: 20070116
  Transmission Date: 20070707
  Serious: Yes (Life-Threatening)
  Sender: FDA-Public Use
  Company Number: ID-BAYER-200710305GDS

PATIENT
  Age: 90 Year
  Sex: Female
  Weight: 50 kg

DRUGS (5)
  1. AVELOX [Suspect]
     Indication: BRONCHOPNEUMONIA
     Dosage: TOTAL DAILY DOSE: 400 MG  UNIT DOSE: 400 MG
     Route: 042
     Dates: start: 20070105, end: 20070112
  2. AMLODIPINE [Concomitant]
     Indication: HYPERTENSION
     Route: 065
  3. MULTI-VITAMIN [Concomitant]
     Indication: DRUG USE FOR UNKNOWN INDICATION
     Route: 065
  4. LAXATIVE [Concomitant]
     Indication: CONSTIPATION
     Route: 065
  5. DOPAMINE HCL [Concomitant]
     Indication: HYPOTENSION
     Route: 065

REACTIONS (1)
  - CLONIC CONVULSION [None]
